FAERS Safety Report 6854426-7 (Version None)
Quarter: 2010Q3

REPORT INFORMATION
  Report Type: 
  Country: None (occurrence: None)
  Receive Date: 20100717
  Receipt Date: 20080105
  Transmission Date: 20110219
  Serious: No
  Sender: FDA-Public Use
  Company Number: US-PFIZER INC-2008002955

PATIENT
  Sex: Female

DRUGS (4)
  1. CHANTIX [Suspect]
     Indication: SMOKING CESSATION THERAPY
     Route: 048
     Dates: start: 20071101
  2. NORVASC [Concomitant]
  3. MAXZIDE [Concomitant]
  4. POTASSIUM CHLORIDE [Concomitant]

REACTIONS (3)
  - COUGH [None]
  - DYSGEUSIA [None]
  - NAUSEA [None]
